FAERS Safety Report 6497721-6 (Version None)
Quarter: 2009Q4

REPORT INFORMATION
  Report Type: 
  Country: None (occurrence: None)
  Receive Date: 20091211
  Receipt Date: 20091204
  Transmission Date: 20100525
  Serious: Yes (Death, Hospitalization)
  Sender: FDA-Public Use
  Company Number: 2008EU002490

PATIENT
  Age: 20 Month
  Sex: Female
  Weight: 9 kg

DRUGS (14)
  1. PROGRAF [Suspect]
     Indication: TRANSPLANT
     Dosage: 1.5 MG, UID/QD, ORAL;1.5 MG, BID, ORAL; 0.75 MG, UID/QD 1 MG, UID/QD
     Route: 048
     Dates: start: 20081004, end: 20081004
  2. PROGRAF [Suspect]
     Indication: TRANSPLANT
     Dosage: 1.5 MG, UID/QD, ORAL;1.5 MG, BID, ORAL; 0.75 MG, UID/QD 1 MG, UID/QD
     Route: 048
     Dates: start: 20081005, end: 20081006
  3. PROGRAF [Suspect]
     Indication: TRANSPLANT
     Dosage: 1.5 MG, UID/QD, ORAL;1.5 MG, BID, ORAL; 0.75 MG, UID/QD 1 MG, UID/QD
     Route: 048
     Dates: start: 20081014, end: 20081014
  4. PROGRAF [Suspect]
     Indication: TRANSPLANT
     Dosage: 1.5 MG, UID/QD, ORAL;1.5 MG, BID, ORAL; 0.75 MG, UID/QD 1 MG, UID/QD
     Route: 048
     Dates: start: 20081014, end: 20081014
  5. PROGRAF [Suspect]
     Indication: TRANSPLANT
     Dosage: 1.5 MG, UID/QD, ORAL;1.5 MG, BID, ORAL; 0.75 MG, UID/QD 1 MG, UID/QD
     Route: 048
     Dates: start: 20081020
  6. NICARDIPINE (NICARDIPINE) FORMULATION UNKNOWN, UNKNOWN [Suspect]
     Indication: HYPERTENSION
     Dosage: 30 MG, UID/QD, IV NOS;  /D, IV NOS
     Route: 042
     Dates: start: 20080921, end: 20081005
  7. NICARDIPINE (NICARDIPINE) FORMULATION UNKNOWN, UNKNOWN [Suspect]
     Indication: HYPERTENSION
     Dosage: 30 MG, UID/QD, IV NOS;  /D, IV NOS
     Route: 042
     Dates: start: 20081008
  8. CYCLOSPORINE [Suspect]
     Indication: TRANSPLANT
     Dosage: 20 MG, BID, ORAL; 40 MG, UID/QD, IV NOS
     Route: 042
     Dates: start: 20080918, end: 20081002
  9. CYCLOSPORINE [Suspect]
     Indication: TRANSPLANT
     Dosage: 20 MG, BID, ORAL; 40 MG, UID/QD, IV NOS
     Route: 042
     Dates: start: 20081001, end: 20081003
  10. LASILIX (FUROSEMIDE SODIUM) [Concomitant]
  11. ALDACTONE [Concomitant]
  12. PROPRANOLOL [Concomitant]
  13. ISRADIPINE [Concomitant]
  14. EUPRESSYL (URAPIDIL HYDROCHLORIDE) [Concomitant]

REACTIONS (5)
  - CLONIC CONVULSION [None]
  - COMPLICATIONS OF TRANSPLANT SURGERY [None]
  - CONDITION AGGRAVATED [None]
  - DRUG LEVEL INCREASED [None]
  - HYPERTENSION [None]
